FAERS Safety Report 16987443 (Version 2)
Quarter: 2019Q4

REPORT INFORMATION
  Report Type: Spontaneous
  Country: KR (occurrence: KR)
  Receive Date: 20191102
  Receipt Date: 20191104
  Transmission Date: 20200122
  Serious: Yes (Hospitalization, Other)
  Sender: FDA-Public Use
  Company Number: KR-SHIRE-KR201936230

PATIENT

DRUGS (1)
  1. FEIBA NF [Suspect]
     Active Substance: ANTI-INHIBITOR COAGULANT COMPLEX
     Indication: ACQUIRED HAEMOPHILIA
     Route: 065

REACTIONS (7)
  - Cytomegalovirus infection [Unknown]
  - Haemolysis [Recovering/Resolving]
  - Mental disorder [Not Recovered/Not Resolved]
  - Haematoma [Unknown]
  - Immunodeficiency [Unknown]
  - Altered state of consciousness [Not Recovered/Not Resolved]
  - Gastrointestinal haemorrhage [Recovered/Resolved]
